FAERS Safety Report 15591062 (Version 1)
Quarter: 2018Q4

REPORT INFORMATION
  Report Type: Spontaneous
  Country: US (occurrence: US)
  Receive Date: 20181107
  Receipt Date: 20181107
  Transmission Date: 20190205
  Serious: Yes (Other)
  Sender: FDA-Public Use
  Company Number: US-TEVA-2018-US-972743

PATIENT
  Age: 40 Year
  Sex: Female

DRUGS (5)
  1. ETOPOSIDE. [Suspect]
     Active Substance: ETOPOSIDE
     Indication: HAEMOPHAGOCYTIC LYMPHOHISTIOCYTOSIS
     Dosage: 150 MG/M2 ON DAY 1, 4, 8 AND DAY 11 (240MG); SUBSEQUENTLY, DOSE WAS REDUCED TO 75%
     Route: 042
  2. DEXAMETHASONE. [Concomitant]
     Active Substance: DEXAMETHASONE
     Indication: HAEMOPHAGOCYTIC LYMPHOHISTIOCYTOSIS
     Dosage: 1.25 MG/M2 (2 MG) FROM DAY 43 TO DAY 49
     Route: 048
  3. DEXAMETHASONE. [Concomitant]
     Active Substance: DEXAMETHASONE
     Indication: HAEMOPHAGOCYTIC LYMPHOHISTIOCYTOSIS
     Dosage: 10 MG/M2 FROM DAY 1 TO DAY 14 (15MG); SUBSEQUENTLY, DOSE WAS REDUCED
     Route: 048
  4. DEXAMETHASONE. [Concomitant]
     Active Substance: DEXAMETHASONE
     Indication: HAEMOPHAGOCYTIC LYMPHOHISTIOCYTOSIS
     Dosage: 5 MG/M2 FROM DAY 15 TO DAY 28 (8 MG); SUBSEQUENTLY, DOSE WAS REDUCED
     Route: 048
  5. DEXAMETHASONE. [Concomitant]
     Active Substance: DEXAMETHASONE
     Indication: HAEMOPHAGOCYTIC LYMPHOHISTIOCYTOSIS
     Dosage: 2.5 MG/M2 FROM DAY 29 TO DAY 42 (4 MG); SUBSEQUENTLY, DOSE WAS REDUCED
     Route: 048

REACTIONS (1)
  - Mucosal inflammation [Unknown]
